FAERS Safety Report 6221503-3 (Version None)
Quarter: 2009Q2

REPORT INFORMATION
  Report Type: 
  Country: None (occurrence: None)
  Receive Date: 20090610
  Receipt Date: 20090601
  Transmission Date: 20091009
  Serious: Yes (Other)
  Sender: FDA-Public Use
  Company Number: PHHY2009BR21447

PATIENT
  Age: 82 Year
  Sex: Male

DRUGS (1)
  1. FLOTAC [Suspect]
     Indication: PAIN IN EXTREMITY
     Dosage: 70 MG, UNK
     Route: 048
     Dates: start: 20090520

REACTIONS (8)
  - ABDOMINAL PAIN UPPER [None]
  - ERYTHEMA [None]
  - HEADACHE [None]
  - HERPES ZOSTER [None]
  - HYPOAESTHESIA [None]
  - PAIN [None]
  - PRURITUS [None]
  - RETCHING [None]
